FAERS Safety Report 12918018 (Version 1)
Quarter: 2016Q4

REPORT INFORMATION
  Report Type: Spontaneous
  Country: US (occurrence: US)
  Receive Date: 20161107
  Receipt Date: 20161107
  Transmission Date: 20170207
  Serious: No
  Sender: FDA-Public Use
  Company Number: US-ALLERGAN-1654474US

PATIENT
  Age: 74 Year
  Sex: Female

DRUGS (3)
  1. RAPAFLO [Suspect]
     Active Substance: SILODOSIN
     Indication: HYPERTONIC BLADDER
     Dosage: 4 MG, UNK
     Route: 048
  2. BENICAR [Concomitant]
     Active Substance: OLMESARTAN MEDOXOMIL
     Indication: PRODUCT USED FOR UNKNOWN INDICATION
  3. RAPAFLO [Suspect]
     Active Substance: SILODOSIN
     Dosage: 8 MG, SINGLE
     Route: 048
     Dates: start: 201604, end: 201604

REACTIONS (4)
  - Fatigue [Recovered/Resolved]
  - Off label use [Unknown]
  - Dizziness [Recovered/Resolved]
  - Drug prescribing error [Unknown]

NARRATIVE: CASE EVENT DATE: 201604
